FAERS Safety Report 13978264 (Version 2)
Quarter: 2017Q3

REPORT INFORMATION
  Report Type: Spontaneous
  Country: IT (occurrence: IT)
  Receive Date: 20170915
  Receipt Date: 20170918
  Transmission Date: 20171128
  Serious: Yes (Other)
  Sender: FDA-Public Use
  Company Number: PHHY2017IT134447

PATIENT
  Age: 3 Year
  Sex: Female

DRUGS (1)
  1. AMOXICILLIN. [Suspect]
     Active Substance: AMOXICILLIN
     Indication: TONSILLITIS STREPTOCOCCAL
     Dosage: 3 DF, QD
     Route: 048
     Dates: start: 20170609, end: 20170614

REACTIONS (5)
  - Urticaria [Recovered/Resolved]
  - Eyelid oedema [Recovered/Resolved]
  - Hypersensitivity [Recovered/Resolved]
  - Hyperaemia [Recovered/Resolved]
  - Face oedema [Recovered/Resolved]

NARRATIVE: CASE EVENT DATE: 20170614
